FAERS Safety Report 4752252-6 (Version None)
Quarter: 2005Q3

REPORT INFORMATION
  Report Type: 
  Country: None (occurrence: None)
  Receive Date: 20050822
  Receipt Date: 20050822
  Transmission Date: 20060218
  Serious: Yes (Hospitalization, Other)
  Sender: FDA-Public Use
  Company Number: None

PATIENT
  Sex: Female
  Weight: 67 kg

DRUGS (3)
  1. VP-16-213 [Suspect]
     Indication: ACUTE MYELOID LEUKAEMIA
     Dosage: SEE IMAVE
     Route: 042
     Dates: start: 20050808, end: 20050812
  2. CYTARABINE [Suspect]
     Dosage: SEE IMAGE
     Route: 042
     Dates: start: 20050808, end: 20050812
  3. G-CSF [Suspect]
     Dosage: SEE IMAGE
     Route: 058
     Dates: start: 20050808

REACTIONS (3)
  - CAECITIS [None]
  - NEUTROPENIA [None]
  - PYREXIA [None]
